FAERS Safety Report 7791709-0 (Version None)
Quarter: 2011Q4

REPORT INFORMATION
  Report Type: 
  Country: None (occurrence: None)
  Receive Date: 20111003
  Receipt Date: 20110920
  Transmission Date: 20120403
  Serious: Yes (Hospitalization, Other)
  Sender: FDA-Public Use
  Company Number: US-BAYER-2011-014783

PATIENT
  Age: 43 Year
  Sex: Female

DRUGS (5)
  1. MOTRIN [Concomitant]
     Indication: PAIN
  2. XOPENEX [Concomitant]
     Dosage: UNK UNK, PRN
  3. LEVAQUIN [Concomitant]
     Dosage: 750 MG, QD
  4. YASMIN [Suspect]
     Indication: DYSMENORRHOEA
     Dosage: UNK
     Dates: start: 20070701
  5. ANTIVERT [Concomitant]
     Dosage: 25 MG, UNK

REACTIONS (6)
  - LOSS OF CONSCIOUSNESS [None]
  - PULMONARY EMBOLISM [None]
  - PAIN [None]
  - ANXIETY [None]
  - INJURY [None]
  - DYSPNOEA [None]
